FAERS Safety Report 8245243-4 (Version None)
Quarter: 2012Q1

REPORT INFORMATION
  Report Type: 
  Country: None (occurrence: None)
  Receive Date: 20120329
  Receipt Date: 20120329
  Transmission Date: 20120608
  Serious: Yes (Other)
  Sender: FDA-Public Use
  Company Number: US-PFIZER INC-2011009036

PATIENT
  Sex: Female
  Weight: 66.667 kg

DRUGS (10)
  1. NICOTROL [Suspect]
     Indication: SMOKING CESSATION THERAPY
     Dosage: 4 MG, UNK
     Route: 055
     Dates: start: 20101201
  2. FUROSEMIDE [Concomitant]
     Dosage: UNK
  3. DIGOXIN [Concomitant]
     Dosage: UNK
  4. AVELOX [Concomitant]
     Dosage: UNK
  5. KLOR-CON [Concomitant]
     Dosage: UNK
  6. NICOTINE [Suspect]
     Indication: SMOKING CESSATION THERAPY
     Dosage: UNK MG, UNK
  7. CLONAZEPAM [Concomitant]
     Dosage: UNK
  8. NICOTROL [Suspect]
     Dosage: UNK
     Dates: start: 20100801
  9. WARFARIN [Concomitant]
     Indication: ANTICOAGULANT THERAPY
     Dosage: 2 MG, UNK
  10. DILTIAZEM [Concomitant]
     Dosage: UNK

REACTIONS (5)
  - FLUID RETENTION [None]
  - MALAISE [None]
  - DEVICE FAILURE [None]
  - DRUG DEPENDENCE [None]
  - TOOTH LOSS [None]
